FAERS Safety Report 4404579-5 (Version None)
Quarter: 2004Q3

REPORT INFORMATION
  Report Type: 
  Country: None (occurrence: None)
  Receive Date: 20040720
  Receipt Date: 20040709
  Transmission Date: 20050211
  Serious: Yes (Hospitalization)
  Sender: FDA-Public Use
  Company Number: EE-2004-027775

PATIENT
  Age: 64 Year
  Sex: Female

DRUGS (1)
  1. CLIMARELLE (LOW DOSE E2 PATCH) VS EVISTA(CODE NOT BROKEN) PATCH [Suspect]
     Indication: OSTEOPOROSIS PROPHYLAXIS
     Dosage: 0.014 MG VS RALOXIFENE 60 MG PO, TRANSDERMAL
     Route: 062
     Dates: start: 20040510, end: 20040613

REACTIONS (3)
  - ACUTE CORONARY SYNDROME [None]
  - ACUTE MYOCARDIAL INFARCTION [None]
  - HYPOTENSION [None]
